FAERS Safety Report 4618964-X (Version None)
Quarter: 2005Q1

REPORT INFORMATION
  Report Type: 
  Country: None (occurrence: None)
  Receive Date: 20050325
  Receipt Date: 20050315
  Transmission Date: 20050727
  Serious: Yes (Hospitalization)
  Sender: FDA-Public Use
  Company Number: JP-JNJFOC-20050104007

PATIENT
  Sex: Female
  Weight: 47.8 kg

DRUGS (11)
  1. REMICADE [Suspect]
     Route: 042
  2. REMICADE [Suspect]
     Indication: RHEUMATOID ARTHRITIS
     Dosage: 147MG.
     Route: 042
  3. METHOTREXATE [Suspect]
  4. METHOTREXATE [Suspect]
  5. METHOTREXATE [Suspect]
     Indication: RHEUMATOID ARTHRITIS
  6. FOLIAMIN [Concomitant]
     Route: 049
  7. PREDNISOLONE [Concomitant]
     Route: 049
  8. SULINDAC [Concomitant]
     Route: 049
  9. ZANTAC [Concomitant]
     Route: 049
  10. LEDOLPER [Concomitant]
     Route: 049
  11. DEXALTIN [Concomitant]

REACTIONS (5)
  - BLOOD PRESSURE INCREASED [None]
  - DRUG INTERACTION [None]
  - FLUSHING [None]
  - INFUSION RELATED REACTION [None]
  - LYMPHOMA [None]
